FAERS Safety Report 4488591-6 (Version None)
Quarter: 2004Q4

REPORT INFORMATION
  Report Type: 
  Country: None (occurrence: None)
  Receive Date: 20041026
  Receipt Date: 20041006
  Transmission Date: 20050328
  Serious: Yes (Death)
  Sender: FDA-Public Use
  Company Number: 20041000445

PATIENT
  Age: 25 Year

DRUGS (3)
  1. PROPRANOLOL [Suspect]
     Dates: end: 20030101
  2. DILTIAZEM [Suspect]
     Dates: end: 20030101
  3. ETHANOL [Suspect]
     Dates: end: 20030101

REACTIONS (1)
  - ADVERSE DRUG REACTION [None]
